FAERS Safety Report 5385872-9 (Version None)
Quarter: 2007Q3

REPORT INFORMATION
  Report Type: 
  Country: None (occurrence: None)
  Receive Date: 20070712
  Receipt Date: 20070706
  Transmission Date: 20080115
  Serious: Yes (Disabling)
  Sender: FDA-Public Use
  Company Number: US-BOEHRINGER INGELHEIM PHARMACEUTICALS, INC.-2007-BP-16870BP

PATIENT
  Age: 88 Year
  Sex: Male

DRUGS (2)
  1. FLOMAX [Suspect]
     Indication: BENIGN PROSTATIC HYPERPLASIA
     Route: 048
     Dates: start: 20021001
  2. BP MEDS [Concomitant]

REACTIONS (4)
  - CATARACT OPERATION [None]
  - EYE DISORDER [None]
  - IRIS DISORDER [None]
  - PHOTOPHOBIA [None]
